FAERS Safety Report 7258138-X (Version None)
Quarter: 2011Q1

REPORT INFORMATION
  Report Type: 
  Country: None (occurrence: None)
  Receive Date: 20110129
  Receipt Date: 20100726
  Transmission Date: 20110831
  Serious: No
  Sender: FDA-Public Use
  Company Number: US-ABBOTT-10P-163-0659928-00

PATIENT
  Sex: Male

DRUGS (10)
  1. HUMIRA [Suspect]
     Indication: PSORIASIS
     Dates: start: 20100726
  2. ATARAX [Concomitant]
  3. KLONOPIN [Concomitant]
  4. RELAFEN [Concomitant]
  5. PAXIL [Concomitant]
  6. AMBIEN [Concomitant]
  7. SINGULAIR [Concomitant]
  8. ZOCOR [Concomitant]
  9. ATARAX [Concomitant]
  10. NEXIUM [Concomitant]

REACTIONS (3)
  - WRONG TECHNIQUE IN DRUG USAGE PROCESS [None]
  - INJECTION SITE ERYTHEMA [None]
  - INJECTION SITE PAPULE [None]
